FAERS Safety Report 21804860 (Version 1)
Quarter: 2023Q1

REPORT INFORMATION
  Report Type: Report from Study
  Country: US (occurrence: US)
  Receive Date: 20230102
  Receipt Date: 20230102
  Transmission Date: 20230418
  Serious: No
  Sender: FDA-Public Use
  Company Number: US-ABBVIE-4223300

PATIENT
  Sex: Male

DRUGS (1)
  1. HUMIRA [Suspect]
     Active Substance: ADALIMUMAB
     Indication: Uveitis
     Dosage: MISSED TWO DOSES OF HUMIRA
     Route: 058
     Dates: start: 20220914, end: 20221028

REACTIONS (1)
  - COVID-19 [Recovering/Resolving]
